FAERS Safety Report 4737927-7 (Version None)
Quarter: 2005Q3

REPORT INFORMATION
  Report Type: 
  Country: None (occurrence: None)
  Receive Date: 20050802
  Receipt Date: 20050718
  Transmission Date: 20060218
  Serious: Yes (Other)
  Sender: FDA-Public Use
  Company Number: 2005-DE-02822GD

PATIENT

DRUGS (2)
  1. MIRTAZAPINE [Suspect]
     Indication: MAJOR DEPRESSION
     Dosage: 30 MG
  2. PAROXETINE HCL [Suspect]
     Indication: MAJOR DEPRESSION
     Dosage: 40 MG

REACTIONS (2)
  - DEPRESSION [None]
  - THERAPY NON-RESPONDER [None]
